FAERS Safety Report 5204318-4 (Version None)
Quarter: 2007Q1

REPORT INFORMATION
  Report Type: 
  Country: None (occurrence: None)
  Receive Date: 20070110
  Receipt Date: 20060210
  Transmission Date: 20070707
  Serious: No
  Sender: FDA-Public Use
  Company Number: US-BRISTOL-MYERS SQUIBB COMPANY-13278734

PATIENT
  Age: 23 Year
  Sex: Male
  Weight: 66 kg

DRUGS (1)
  1. ABILIFY [Suspect]
     Indication: SCHIZOPHRENIA
     Dosage: INITALLY DOSE WAS 30 MG/D. IT WAS DECREASED INCREMENTALLY DOWN TO 5 MG/D.
     Route: 048

REACTIONS (3)
  - CONFUSIONAL STATE [None]
  - HYPERHIDROSIS [None]
  - VISION BLURRED [None]
